FAERS Safety Report 9418262 (Version 1)
Quarter: 2013Q3

REPORT INFORMATION
  Report Type: Spontaneous
  Country: BR (occurrence: BR)
  Receive Date: 20130724
  Receipt Date: 20130724
  Transmission Date: 20140515
  Serious: Yes (Death, Hospitalization)
  Sender: FDA-Public Use
  Company Number: BR-ALEXION PHARMACEUTICALS INC.-A201301684

PATIENT
  Age: 30 Year
  Sex: Male

DRUGS (1)
  1. SOLIRIS 300MG [Suspect]
     Indication: HAEMOLYTIC URAEMIC SYNDROME
     Dosage: 900 MG, Q2W
     Route: 042
     Dates: start: 20130606, end: 20130622

REACTIONS (8)
  - Adenovirus infection [Fatal]
  - Febrile neutropenia [Fatal]
  - Bronchopulmonary aspergillosis [Fatal]
  - Renal failure [Fatal]
  - Respiratory failure [Fatal]
  - Thrombotic microangiopathy [Fatal]
  - Haemodynamic instability [Unknown]
  - Drug ineffective [Unknown]
